FAERS Safety Report 4647929-7 (Version None)
Quarter: 2005Q2

REPORT INFORMATION
  Report Type: 
  Country: None (occurrence: None)
  Receive Date: 20050426
  Receipt Date: 20050426
  Transmission Date: 20051028
  Serious: Yes (Life-Threatening, Hospitalization)
  Sender: FDA-Public Use
  Company Number: None

PATIENT
  Age: 63 Year
  Sex: Female
  Weight: 74.8435 kg

DRUGS (9)
  1. SEROQUEL [Suspect]
     Indication: SCHIZOPHRENIA
     Dosage: 50MG HS   , 200MG HS  , 25MG BID + 300 MG HS
     Dates: start: 20050111, end: 20050123
  2. SEROQUEL [Suspect]
     Indication: SCHIZOPHRENIA
     Dosage: 50MG HS   , 200MG HS  , 25MG BID + 300 MG HS
     Dates: start: 20050124
  3. SEROQUEL [Suspect]
     Indication: SCHIZOPHRENIA
     Dosage: 50MG HS   , 200MG HS  , 25MG BID + 300 MG HS
     Dates: start: 20050125
  4. AMANTADINE HCL [Concomitant]
  5. TOPROL-XL [Concomitant]
  6. LISINOPRIL [Concomitant]
  7. PROTONIX [Concomitant]
  8. ASPIRIN [Concomitant]
  9. SYNTHROID [Concomitant]

REACTIONS (2)
  - HYPERTHERMIA [None]
  - NEUROLEPTIC MALIGNANT SYNDROME [None]
